FAERS Safety Report 9542889 (Version 1)
Quarter: 2013Q3

REPORT INFORMATION
  Report Type: Spontaneous
  Country: US (occurrence: US)
  Receive Date: 20130923
  Receipt Date: 20130923
  Transmission Date: 20140515
  Serious: No
  Sender: FDA-Public Use
  Company Number: US-PFIZER INC-2013270428

PATIENT
  Sex: Female

DRUGS (2)
  1. NAPROXEN SODIUM [Suspect]
     Dosage: 500 MG, 2X/DAY
  2. CELEBREX [Suspect]
     Dosage: 200 MG, UNK

REACTIONS (2)
  - Abdominal pain upper [Unknown]
  - Gastrooesophageal reflux disease [Unknown]
